FAERS Safety Report 8512076-0 (Version None)
Quarter: 2012Q3

REPORT INFORMATION
  Report Type: 
  Country: None (occurrence: None)
  Receive Date: 20120716
  Receipt Date: 20120706
  Transmission Date: 20120928
  Serious: Yes (Other)
  Sender: FDA-Public Use
  Company Number: GB-ASTRAZENECA-2012SE46088

PATIENT
  Sex: Female
  Weight: 65.3 kg

DRUGS (4)
  1. COTENIDONE [Concomitant]
  2. PROPRANOLOL [Suspect]
     Indication: MIGRAINE PROPHYLAXIS
     Route: 048
     Dates: start: 20111201
  3. PROPRANOLOL [Suspect]
     Route: 048
     Dates: start: 20110101
  4. ATENOLOL [Suspect]
     Indication: MIGRAINE PROPHYLAXIS
     Route: 065

REACTIONS (4)
  - SKIN DISORDER [None]
  - HYPERSENSITIVITY [None]
  - PAIN OF SKIN [None]
  - PRURITUS [None]
